FAERS Safety Report 13531384 (Version 1)
Quarter: 2017Q2

REPORT INFORMATION
  Report Type: Other
  Country: CA (occurrence: CA)
  Receive Date: 20170510
  Receipt Date: 20170510
  Transmission Date: 20170830
  Serious: Yes (Life-Threatening, Other)
  Sender: FDA-Public Use
  Company Number: CA-APOTEX-2017AP011492

PATIENT
  Age: 55 Year
  Sex: Male

DRUGS (3)
  1. APO-LOSARTAN [Suspect]
     Active Substance: LOSARTAN
     Indication: SYSTEMIC SCLERODERMA
     Route: 065
  2. APO-AMLODIPINE [Suspect]
     Active Substance: AMLODIPINE BESYLATE
     Indication: SYSTEMIC SCLERODERMA
     Route: 065
  3. APO-CAPTO TAB 100MG [Suspect]
     Active Substance: CAPTOPRIL
     Indication: SYSTEMIC SCLERODERMA
     Route: 065

REACTIONS (6)
  - Scleroderma renal crisis [Unknown]
  - Haemodialysis [Unknown]
  - Renal transplant [Unknown]
  - Off label use [Unknown]
  - Drug ineffective for unapproved indication [Unknown]
  - End stage renal disease [Unknown]
